FAERS Safety Report 5700476-3 (Version None)
Quarter: 2008Q2

REPORT INFORMATION
  Report Type: 
  Country: None (occurrence: None)
  Receive Date: 20080410
  Receipt Date: 20080331
  Transmission Date: 20081010
  Serious: Yes (Other)
  Sender: FDA-Public Use
  Company Number: US-JNJFOC-20080401017

PATIENT
  Sex: Female
  Weight: 47.17 kg

DRUGS (12)
  1. DURAGESIC-100 [Suspect]
     Indication: BACK DISORDER
     Route: 062
  2. VERAPAMIL [Concomitant]
     Indication: BLOOD PRESSURE
     Route: 048
  3. NEXIUM [Concomitant]
     Indication: GASTROOESOPHAGEAL REFLUX DISEASE
     Route: 048
  4. PLAVIX [Concomitant]
     Indication: ANTICOAGULANT THERAPY
     Route: 048
  5. ZOCOR [Concomitant]
     Indication: BLOOD CHOLESTEROL
     Route: 048
  6. TRANXENE [Concomitant]
     Indication: ANXIETY
     Route: 048
  7. AMBIEN [Concomitant]
     Indication: SLEEP DISORDER
     Route: 048
  8. SOMA [Concomitant]
     Indication: PAIN
     Route: 048
  9. BONIVA [Concomitant]
     Indication: OSTEOPOROSIS
     Route: 048
  10. ZOMIG [Concomitant]
     Indication: MIGRAINE
     Route: 048
  11. NIASPAN [Concomitant]
     Indication: BLOOD CHOLESTEROL
     Route: 048
  12. OXYCODONE HCL [Concomitant]
     Indication: BREAKTHROUGH PAIN
     Route: 048

REACTIONS (13)
  - ACTIVITIES OF DAILY LIVING IMPAIRED [None]
  - ASTHENIA [None]
  - DEHYDRATION [None]
  - DEPRESSION [None]
  - HYPERTENSION [None]
  - INAPPROPRIATE SCHEDULE OF DRUG ADMINISTRATION [None]
  - INCORRECT DRUG ADMINISTRATION DURATION [None]
  - NAUSEA [None]
  - PAIN [None]
  - RESTLESS LEGS SYNDROME [None]
  - VOMITING [None]
  - WITHDRAWAL SYNDROME [None]
  - WRONG TECHNIQUE IN DRUG USAGE PROCESS [None]
